FAERS Safety Report 11409675 (Version 1)
Quarter: 2015Q3

REPORT INFORMATION
  Report Type: Spontaneous
  Country: US (occurrence: None)
  Receive Date: 20150820
  Receipt Date: 20150820
  Transmission Date: 20151125
  Serious: Yes (Other)
  Sender: FDA-Public Use
  Company Number: None

PATIENT
  Age: 38 Year
  Sex: Female
  Weight: 60.78 kg

DRUGS (11)
  1. CHAMOMILE TEA [Concomitant]
     Active Substance: MATRICARIA RECUTITA
  2. VIT A + D [Concomitant]
  3. BIOTIN [Concomitant]
     Active Substance: BIOTIN
  4. VITAMIN E [Concomitant]
     Active Substance: .ALPHA.-TOCOPHEROL
  5. QUETIAPINE [Concomitant]
     Active Substance: QUETIAPINE
  6. COMBIPATCH [Suspect]
     Active Substance: ESTRADIOL\NORETHINDRONE ACETATE
     Indication: MENOPAUSAL SYMPTOMS
     Dosage: APPLIED AS MEDICATED PATCH TO SKIN
     Route: 061
     Dates: start: 20150721, end: 20150813
  7. VITAMIN C [Concomitant]
     Active Substance: ASCORBIC ACID
  8. MAGNESIUM [Concomitant]
     Active Substance: MAGNESIUM
  9. LYSINE [Concomitant]
     Active Substance: LYSINE
  10. ASPIRIN. [Concomitant]
     Active Substance: ASPIRIN
  11. BENADRYL [Concomitant]
     Active Substance: DIPHENHYDRAMINE HYDROCHLORIDE

REACTIONS (11)
  - Distractibility [None]
  - Anger [None]
  - Feeling jittery [None]
  - Insomnia [None]
  - Emotional disorder [None]
  - Cognitive disorder [None]
  - Depressed mood [None]
  - Disturbance in attention [None]
  - Impaired driving ability [None]
  - Product quality issue [None]
  - Nervousness [None]

NARRATIVE: CASE EVENT DATE: 20150807
